FAERS Safety Report 8451135-8 (Version None)
Quarter: 2012Q2

REPORT INFORMATION
  Report Type: 
  Country: None (occurrence: None)
  Receive Date: 20120323
  Receipt Date: 20111018
  Transmission Date: 20120825
  Serious: Yes (Other)
  Sender: FDA-Public Use
  Company Number: 163-21880-11102060

PATIENT
  Age: 54 Year
  Sex: Female

DRUGS (4)
  1. DEXAMETHASONE [Concomitant]
  2. ASPIRIN [Concomitant]
  3. LENALIDOMIDE [Suspect]
     Indication: MULTIPLE MYELOMA
     Dosage: 25 MG, QD, PO 10 MG, PO
     Route: 048
     Dates: start: 20111001
  4. LISINOPRIL [Concomitant]

REACTIONS (2)
  - RENAL FAILURE [None]
  - CONDITION AGGRAVATED [None]
